FAERS Safety Report 9448562 (Version 1)
Quarter: 2013Q3

REPORT INFORMATION
  Report Type: Report from Study
  Country: DE (occurrence: DE)
  Receive Date: 20130808
  Receipt Date: 20130808
  Transmission Date: 20140515
  Serious: Yes (Hospitalization, Other)
  Sender: FDA-Public Use
  Company Number: DE-UCBSA-093781

PATIENT
  Sex: Female
  Weight: 84 kg

DRUGS (8)
  1. NEUPRO [Suspect]
     Indication: RESTLESS LEGS SYNDROME
     Route: 062
  2. L-THYROXINE [Concomitant]
     Indication: HYPOTHYROIDISM
     Route: 048
  3. TRAMADOL [Concomitant]
     Indication: RESTLESS LEGS SYNDROME
     Dosage: 20 GH TWICE DAILY
  4. TRAMADOL [Concomitant]
     Indication: RESTLESS LEGS SYNDROME
     Dosage: 50 (1/DAILY)
  5. DIAZEPAM [Concomitant]
     Indication: RESTLESS LEGS SYNDROME
     Dosage: 5 MG 1/4 1 DAILY
     Route: 048
  6. BALDRIAN - DISPERT [Concomitant]
     Indication: SLEEP DISORDER
     Dosage: 2200/816 MG 1/DAY AT NIGHT
     Route: 048
  7. NEBILET [Concomitant]
     Route: 048
  8. FEMIKLIMAN [Concomitant]
     Indication: SYNCOPE
     Route: 048

REACTIONS (1)
  - Arrhythmia [Unknown]
